FAERS Safety Report 7463734-0 (Version None)
Quarter: 2011Q2

REPORT INFORMATION
  Report Type: 
  Country: None (occurrence: None)
  Receive Date: 20110506
  Receipt Date: 20110503
  Transmission Date: 20111010
  Serious: Yes (Other)
  Sender: FDA-Public Use
  Company Number: US-AMGEN-USASP2011021939

PATIENT
  Sex: Female
  Weight: 130 kg

DRUGS (4)
  1. ABILIFY [Concomitant]
  2. TENORMIN [Concomitant]
  3. LASIX [Concomitant]
  4. NPLATE [Suspect]
     Indication: IDIOPATHIC THROMBOCYTOPENIC PURPURA
     Dosage: 250 A?G, UNK
     Route: 058
     Dates: start: 20090625, end: 20110127

REACTIONS (2)
  - DRUG INEFFECTIVE [None]
  - THERAPEUTIC RESPONSE DECREASED [None]
